FAERS Safety Report 7363056-2 (Version None)
Quarter: 2011Q1

REPORT INFORMATION
  Report Type: 
  Country: None (occurrence: None)
  Receive Date: 20110321
  Receipt Date: 20110316
  Transmission Date: 20110831
  Serious: No
  Sender: FDA-Public Use
  Company Number: US-PFIZER INC-2011058324

PATIENT
  Sex: Female
  Weight: 58.957 kg

DRUGS (1)
  1. ADVIL CONGESTION RELIEF [Suspect]
     Indication: SINUS CONGESTION
     Dosage: 200 MG, DAILY
     Route: 048
     Dates: start: 20110314

REACTIONS (1)
  - DRUG INEFFECTIVE [None]
